FAERS Safety Report 5129495-5 (Version None)
Quarter: 2006Q4

REPORT INFORMATION
  Report Type: 
  Country: None (occurrence: None)
  Receive Date: 20061012
  Receipt Date: 20061004
  Transmission Date: 20070319
  Serious: Yes (Death, Hospitalization, Other)
  Sender: FDA-Public Use
  Company Number: 163-20785-06090657

PATIENT
  Age: 18 Year
  Sex: Female

DRUGS (11)
  1. THALOMID [Suspect]
     Indication: JUVENILE ARTHRITIS
     Dosage: 200 GM, 4 IN 1 D, ORAL
     Route: 048
     Dates: start: 20060706, end: 20060911
  2. NEUPOGEN [Concomitant]
  3. PREDNISONE TAB [Concomitant]
  4. KINERET [Concomitant]
  5. METHOTREXATE [Concomitant]
  6. NEXIUM [Concomitant]
  7. MAGNESIUM (MAGNESIUM) [Concomitant]
  8. NAPROXEN [Concomitant]
  9. FOLIC ACID [Concomitant]
  10. MULTI-VITAMINS [Concomitant]
  11. CALCIUM (CALCIUM) [Concomitant]

REACTIONS (12)
  - ARTHRITIS [None]
  - CARDIAC ARREST [None]
  - COAGULOPATHY [None]
  - HAEMODIALYSIS [None]
  - HISTIOCYTOSIS HAEMATOPHAGIC [None]
  - HYPOXIA [None]
  - INTRAVASCULAR HAEMOLYSIS [None]
  - JUVENILE ARTHRITIS [None]
  - METABOLIC ACIDOSIS [None]
  - PULMONARY HYPERTENSION [None]
  - SYSTEMIC LUPUS ERYTHEMATOSUS [None]
  - THROMBOTIC THROMBOCYTOPENIC PURPURA [None]
